FAERS Safety Report 7315088-8 (Version None)
Quarter: 2011Q1

REPORT INFORMATION
  Report Type: 
  Country: None (occurrence: None)
  Receive Date: 20110225
  Receipt Date: 20100712
  Transmission Date: 20110831
  Serious: No
  Sender: FDA-Public Use
  Company Number: US-MYLANLABS-2010S1005822

PATIENT
  Age: 53 Year
  Sex: Female
  Weight: 70.76 kg

DRUGS (6)
  1. OMEPRAZOLE [Concomitant]
  2. AMNESTEEM [Suspect]
     Indication: ACNE
     Route: 048
     Dates: start: 20091130, end: 20100402
  3. CLARAVIS [Suspect]
     Indication: ACNE
     Route: 048
     Dates: start: 20091201, end: 20100402
  4. LEVOTHYROXINE [Concomitant]
  5. MICARDIS [Concomitant]
  6. CRESTOR [Concomitant]

REACTIONS (2)
  - MYALGIA [None]
  - ARTHRALGIA [None]
